FAERS Safety Report 6430678-2 (Version None)
Quarter: 2009Q4

REPORT INFORMATION
  Report Type: 
  Country: None (occurrence: None)
  Receive Date: 20091106
  Receipt Date: 20091027
  Transmission Date: 20100525
  Serious: Yes (Other)
  Sender: FDA-Public Use
  Company Number: B0602230A

PATIENT
  Age: 61 Year
  Sex: Male

DRUGS (1)
  1. LAMIVUDINE [Suspect]
     Indication: NON-HODGKIN'S LYMPHOMA
     Dosage: 100MG PER DAY

REACTIONS (2)
  - HEPATITIS B DNA INCREASED [None]
  - LIVER FUNCTION TEST ABNORMAL [None]
